FAERS Safety Report 4781927-8 (Version None)
Quarter: 2005Q3

REPORT INFORMATION
  Report Type: 
  Country: None (occurrence: None)
  Receive Date: 20050928
  Receipt Date: 20050922
  Transmission Date: 20060218
  Serious: Yes (Hospitalization)
  Sender: FDA-Public Use
  Company Number: US-MERCK-0509USA03481

PATIENT
  Age: 53 Year
  Sex: Female

DRUGS (3)
  1. MAXALT [Suspect]
     Route: 048
  2. TAMOXIFEN CITRATE [Suspect]
     Route: 065
  3. HYDROCHLOROTHIAZIDE [Concomitant]
     Route: 065

REACTIONS (2)
  - COLITIS ISCHAEMIC [None]
  - INAPPROPRIATE SCHEDULE OF DRUG ADMINISTRATION [None]
